FAERS Safety Report 9370928 (Version 1)
Quarter: 2013Q2

REPORT INFORMATION
  Report Type: Spontaneous
  Country: US (occurrence: US)
  Receive Date: 20130627
  Receipt Date: 20130627
  Transmission Date: 20140414
  Serious: No
  Sender: FDA-Public Use
  Company Number: US-ASTRAZENECA-2013SE46819

PATIENT
  Age: 7 Year
  Sex: Male
  Weight: 22.7 kg

DRUGS (4)
  1. PULMICORT FLEXHALER [Suspect]
     Indication: ASTHMA
     Dosage: 180 MCG BID
     Route: 055
     Dates: start: 2011, end: 201306
  2. SYMBICORT [Suspect]
     Indication: ASTHMA
     Dosage: 160 MCG,BID
     Route: 055
     Dates: start: 201306
  3. ALBUTEROL [Concomitant]
     Indication: ASTHMA
     Dosage: AS REQUIRED
     Route: 055
  4. CLARITIN OTC [Concomitant]
     Indication: ASTHMA
     Route: 048

REACTIONS (5)
  - Chest discomfort [Unknown]
  - Wheezing [Unknown]
  - Dyspnoea [Unknown]
  - Off label use [Unknown]
  - Off label use [Unknown]
